FAERS Safety Report 15226344 (Version 1)
Quarter: 2018Q3

REPORT INFORMATION
  Report Type: Spontaneous
  Country: US (occurrence: US)
  Receive Date: 20180706
  Receipt Date: 20180706
  Transmission Date: 20181010
  Serious: Yes (Disabling)
  Sender: FDA-Public Use
  Company Number: None

PATIENT
  Age: 59 Year
  Sex: Female
  Weight: 54.9 kg

DRUGS (1)
  1. LEVOFLOXACIN 750 MG TABLET [Suspect]
     Active Substance: LEVOFLOXACIN
     Indication: PNEUMONIA
     Dosage: ?          QUANTITY:7 DF DOSAGE FORM;?
     Route: 048
     Dates: start: 20180217, end: 20180220

REACTIONS (14)
  - Arthralgia [None]
  - Weight decreased [None]
  - Headache [None]
  - Hyperacusis [None]
  - Tremor [None]
  - Decreased appetite [None]
  - Palpitations [None]
  - Muscular weakness [None]
  - Erythema [None]
  - Tendon pain [None]
  - Insomnia [None]
  - Panic attack [None]
  - Disturbance in attention [None]
  - Loss of personal independence in daily activities [None]

NARRATIVE: CASE EVENT DATE: 20180220
